FAERS Safety Report 13882326 (Version 2)
Quarter: 2020Q3

REPORT INFORMATION
  Report Type: Spontaneous
  Country: US (occurrence: US)
  Receive Date: 20170818
  Receipt Date: 20170829
  Transmission Date: 20201105
  Serious: Yes (Death, Other)
  Sender: FDA-Public Use
  Company Number: US-IMPAX LABORATORIES, INC-2017-IPXL-02422

PATIENT
  Age: 81 Year
  Sex: Female
  Weight: 73 kg

DRUGS (11)
  1. ESMOLOL [Concomitant]
     Active Substance: ESMOLOL HYDROCHLORIDE
     Indication: ISCHAEMIC HEART DISEASE PROPHYLAXIS
     Dosage: 10 MG, UNK
     Route: 042
  2. HEPARIN [Concomitant]
     Active Substance: HEPARIN SODIUM
     Indication: PRODUCT USED FOR UNKNOWN INDICATION
     Dosage: 5000 IU, UNK
     Route: 042
  3. VASOPRESSIN. [Concomitant]
     Active Substance: VASOPRESSIN
     Indication: PRODUCT USED FOR UNKNOWN INDICATION
     Dosage: .04 UNITS/MINUTE, INFUSION
     Route: 050
  4. ADRENACLICK [Suspect]
     Active Substance: EPINEPHRINE
     Indication: HYPOTENSION
     Dosage: 4 ?G, UNK
     Route: 040
  5. EPHEDRINE. [Suspect]
     Active Substance: EPHEDRINE
     Indication: HYPOTENSION
     Dosage: UNK
     Route: 065
  6. ASPIRIN                            /00002701/ [Concomitant]
     Active Substance: ASPIRIN
     Indication: PRODUCT USED FOR UNKNOWN INDICATION
     Dosage: 325 MG, UNK
     Route: 049
  7. ADRENACLICK [Suspect]
     Active Substance: EPINEPHRINE
     Dosage: 6 ?G/MIN, INFUSION
     Route: 050
  8. PHENYLEPHRINE [Suspect]
     Active Substance: PHENYLEPHRINE HYDROCHLORIDE
     Indication: HYPOTENSION
     Dosage: UNK
     Route: 065
  9. CLOPIDOGREL [Concomitant]
     Active Substance: CLOPIDOGREL BISULFATE
     Indication: PRODUCT USED FOR UNKNOWN INDICATION
     Dosage: 750 MG, UNK
     Route: 049
  10. ADRENACLICK [Suspect]
     Active Substance: EPINEPHRINE
     Indication: PULSELESS ELECTRICAL ACTIVITY
     Dosage: 1 MG, (1 AND 3 MINUTES)
     Route: 040
  11. MIDAZOLAM HYDROCHLORIDE. [Concomitant]
     Active Substance: MIDAZOLAM HYDROCHLORIDE
     Indication: ANXIETY
     Dosage: 1 MG, UNK
     Route: 042

REACTIONS (6)
  - Deep vein thrombosis [Unknown]
  - Drug ineffective [Unknown]
  - Stress cardiomyopathy [Fatal]
  - Atrial fibrillation [Unknown]
  - Hypertension [Unknown]
  - Ventricular fibrillation [Fatal]
